FAERS Safety Report 21714771 (Version 1)
Quarter: 2022Q4

REPORT INFORMATION
  Report Type: Spontaneous
  Country: US (occurrence: US)
  Receive Date: 20221212
  Receipt Date: 20221212
  Transmission Date: 20230113
  Serious: No
  Sender: FDA-Public Use
  Company Number: US-ELI_LILLY_AND_COMPANY-US202212002273

PATIENT
  Sex: Female

DRUGS (3)
  1. TRULICITY [Suspect]
     Active Substance: DULAGLUTIDE
     Indication: Type 2 diabetes mellitus
     Dosage: 0.75 MG, UNKNOWN
     Route: 058
     Dates: start: 202205
  2. METFORMIN [Suspect]
     Active Substance: METFORMIN HYDROCHLORIDE
     Indication: Diabetes mellitus
     Dosage: 500 MG, UNKNOWN
     Route: 065
  3. INSULIN NOS [Concomitant]
     Active Substance: INSULIN NOS
     Indication: Product used for unknown indication

REACTIONS (5)
  - Skin laxity [Unknown]
  - Weight increased [Unknown]
  - Food craving [Unknown]
  - Gastric disorder [Unknown]
  - Hepatitis [Unknown]
